FAERS Safety Report 7721983-8 (Version None)
Quarter: 2011Q3

REPORT INFORMATION
  Report Type: 
  Country: None (occurrence: None)
  Receive Date: 20110831
  Receipt Date: 20110822
  Transmission Date: 20111222
  Serious: Yes (Other)
  Sender: FDA-Public Use
  Company Number: US-ASTRAZENECA-2011SE50515

PATIENT
  Age: 58 Year
  Sex: Female

DRUGS (24)
  1. ESTRACE [Concomitant]
     Route: 048
     Dates: start: 20101118
  2. ASPIRIN [Concomitant]
     Route: 048
     Dates: start: 20101215
  3. PERCOCET [Concomitant]
     Indication: PAIN
     Dosage: ONE TABLET QID PRN 10-325
     Route: 048
     Dates: start: 20110707
  4. SINGULAIR [Concomitant]
     Route: 048
     Dates: start: 20071015
  5. PLAVIX [Concomitant]
     Route: 048
     Dates: start: 20101027
  6. REQUIP [Concomitant]
  7. VITAMIN B-12 [Concomitant]
     Dates: start: 20090304
  8. OMEPRAZOLE CPDR [Concomitant]
     Route: 048
     Dates: start: 20101004
  9. FLEXERIL [Concomitant]
     Dosage: THREE TIMES A DAY PRN
     Route: 048
     Dates: start: 20100806
  10. ADDERALL 5 [Concomitant]
     Route: 048
     Dates: start: 20110405
  11. CELEXA [Concomitant]
     Route: 048
     Dates: start: 20110613
  12. HYDROCHLOROTHIAZIDE [Concomitant]
     Dates: start: 20110620
  13. SUMATRIPTAN SUCCINATE [Concomitant]
     Indication: HEADACHE
     Dosage: ONLY TWO PILLS IN 24 HOURS
     Dates: start: 20110720
  14. CRESTOR [Suspect]
     Route: 048
     Dates: start: 20100806
  15. BYSTOLIC [Concomitant]
     Route: 048
     Dates: start: 20110502
  16. CHLORHEXIDINE GLUCONATE [Concomitant]
     Indication: PAIN
     Dosage: AS NEEDED
     Dates: start: 20110720
  17. SYNTHROID [Concomitant]
     Route: 048
     Dates: start: 20110208
  18. ATARAX [Concomitant]
     Route: 048
     Dates: start: 20100806
  19. PROAIR HFA 108 [Concomitant]
     Dosage: TWO PUFFS FIVE MOINS APART EVERY FOUR HOURS PRN
     Dates: start: 20110505
  20. ESTRACE [Concomitant]
     Route: 048
  21. BUSPAR [Concomitant]
     Route: 048
     Dates: start: 20110307
  22. BICITITRATE [Concomitant]
     Dosage: 15 CC DAILY
     Dates: start: 20110310
  23. REQUIP [Concomitant]
     Dates: start: 20110328
  24. NUVIGIL [Concomitant]
     Route: 048
     Dates: start: 20110502

REACTIONS (11)
  - HEADACHE [None]
  - RENAL FAILURE [None]
  - SNORING [None]
  - ARTHRALGIA [None]
  - FATIGUE [None]
  - OEDEMA PERIPHERAL [None]
  - OEDEMA [None]
  - NARCOLEPSY [None]
  - TOOTHACHE [None]
  - HYPERKALAEMIA [None]
  - PAIN [None]
